FAERS Safety Report 6480261-8 (Version None)
Quarter: 2009Q4

REPORT INFORMATION
  Report Type: 
  Country: None (occurrence: None)
  Receive Date: 20091123
  Receipt Date: 20090806
  Transmission Date: 20100525
  Serious: No
  Sender: FDA-Public Use
  Company Number: 8049997

PATIENT
  Age: 17 Year
  Sex: Male
  Weight: 55.9 kg

DRUGS (6)
  1. CIMZIA [Suspect]
     Indication: CROHN'S DISEASE
     Dosage: 400 MG SC
     Route: 058
     Dates: start: 20090731
  2. PREDNISONE [Concomitant]
  3. LIALDA [Concomitant]
  4. IMURAN [Concomitant]
  5. PANTOPRAZOLE [Concomitant]
  6. HYDROCODONE BITARTRATE AND ACETAMINOPHEN [Concomitant]

REACTIONS (4)
  - FATIGUE [None]
  - INJECTION SITE HAEMORRHAGE [None]
  - OEDEMA PERIPHERAL [None]
  - SYNCOPE [None]
